FAERS Safety Report 25735100 (Version 1)
Quarter: 2025Q3

REPORT INFORMATION
  Report Type: Spontaneous
  Country: US (occurrence: US)
  Receive Date: 20250828
  Receipt Date: 20250828
  Transmission Date: 20251021
  Serious: No
  Sender: TEVA
  Company Number: US-TEVA-VS-3361486

PATIENT
  Age: 68 Year
  Sex: Female
  Weight: 66.68 kg

DRUGS (1)
  1. AJOVY [Suspect]
     Active Substance: FREMANEZUMAB-VFRM
     Indication: Migraine
     Dosage: 225/1.5MG/ML, UNDER THE SKIN
     Route: 065
     Dates: start: 2024, end: 2025

REACTIONS (1)
  - Drug ineffective [Unknown]
